FAERS Safety Report 5332610-1 (Version None)
Quarter: 2007Q2

REPORT INFORMATION
  Report Type: 
  Country: None (occurrence: None)
  Receive Date: 20070523
  Receipt Date: 20070511
  Transmission Date: 20071010
  Serious: Yes (Death)
  Sender: FDA-Public Use
  Company Number: PE-AMGEN-US183086

PATIENT
  Sex: Male
  Weight: 17 kg

DRUGS (5)
  1. ENBREL [Suspect]
     Indication: JUVENILE ARTHRITIS
     Route: 058
     Dates: start: 20060210, end: 20060401
  2. ENBREL [Suspect]
     Route: 058
     Dates: start: 20060401, end: 20060529
  3. PREDNISONE TAB [Suspect]
     Indication: JUVENILE ARTHRITIS
     Dosage: UNKNOWN
     Dates: start: 20060126
  4. METHOTREXATE [Suspect]
     Indication: JUVENILE ARTHRITIS
     Dosage: UNKNOWN DOSE ONCE WEEKLY
     Dates: start: 20060120
  5. NAPROXEN SODIUM [Concomitant]
     Indication: JUVENILE ARTHRITIS
     Dosage: UNKNOWN
     Dates: start: 20060126

REACTIONS (6)
  - BRONCHOPNEUMONIA [None]
  - DIARRHOEA [None]
  - NASOPHARYNGITIS [None]
  - ORAL CANDIDIASIS [None]
  - SEPSIS [None]
  - TOOTH ABSCESS [None]
